FAERS Safety Report 5227985-8 (Version None)
Quarter: 2007Q1

REPORT INFORMATION
  Report Type: 
  Country: None (occurrence: None)
  Receive Date: 20061201
  Receipt Date: 20060602
  Transmission Date: 20070707
  Serious: Yes (Hospitalization)
  Sender: FDA-Public Use
  Company Number: 2006-139418-NL

PATIENT
  Age: 40 Year
  Sex: Female
  Weight: 62.6 kg

DRUGS (7)
  1. NUVARING [Suspect]
     Indication: CONTRACEPTION
     Dosage: VAGINAL, 3 WEEKS IN, 1 WEEK OUT
     Route: 067
     Dates: start: 20051001, end: 20060101
  2. ZOLOFT [Concomitant]
  3. TETRACYCLINE [Concomitant]
  4. ERYTHROMYCIN [Concomitant]
  5. LUNESTA [Concomitant]
  6. XANAX [Concomitant]
  7. MULTI-VITAMINS [Concomitant]

REACTIONS (1)
  - PULMONARY EMBOLISM [None]
